FAERS Safety Report 8024127-0 (Version None)
Quarter: 2012Q1

REPORT INFORMATION
  Report Type: 
  Country: None (occurrence: None)
  Receive Date: 20120105
  Receipt Date: 20111222
  Transmission Date: 20120608
  Serious: Yes (Hospitalization)
  Sender: FDA-Public Use
  Company Number: JP-ASTELLAS-2011US008370

PATIENT
  Sex: Male
  Weight: 66 kg

DRUGS (6)
  1. ERLOTINIB HYDROCHLORIDE [Suspect]
     Indication: NON-SMALL CELL LUNG CANCER
     Dosage: 150 MG, UID/QD
     Route: 048
     Dates: start: 20110323, end: 20111201
  2. OLOPATADINE HCL [Suspect]
     Indication: RASH
     Dosage: 5 MG, BID
     Route: 048
     Dates: start: 20110930
  3. CINAL [Concomitant]
     Indication: RASH
     Dosage: 1 DF, TID
     Route: 048
     Dates: start: 20110610
  4. ZINC OXIDE [Concomitant]
     Indication: RASH
     Dosage: 1 DF, UID/QD
     Route: 061
     Dates: start: 20110405
  5. RINDERON VG [Concomitant]
     Indication: RASH
     Dosage: 1 DF, UID/QD
     Route: 061
     Dates: start: 20110930
  6. HIRUDOID [Concomitant]
     Indication: RASH
     Dosage: 1 DF, UID/QD
     Route: 061
     Dates: start: 20111028

REACTIONS (3)
  - HYPERTENSION [None]
  - PERIPHERAL EMBOLISM [None]
  - PULMONARY EMBOLISM [None]
